FAERS Safety Report 10077197 (Version 2)
Quarter: 2014Q2

REPORT INFORMATION
  Report Type: Report from Study
  Country: JP (occurrence: JP)
  Receive Date: 20140414
  Receipt Date: 20140523
  Transmission Date: 20141212
  Serious: Yes (Hospitalization, Other)
  Sender: FDA-Public Use
  Company Number: JP-SHIONOGI, INC-2014000282

PATIENT
  Age: 34 Year
  Sex: Female
  Weight: 44 kg

DRUGS (7)
  1. DORIPENEM [Suspect]
     Indication: MENINGITIS
     Dosage: 0.5 G, TID
     Route: 041
     Dates: start: 20131229, end: 20140108
  2. VANCOMYCIN [Concomitant]
     Indication: MENINGITIS
     Dosage: 1 G, BID
     Route: 065
     Dates: start: 20131229, end: 20140213
  3. VICCLOX                            /00587301/ [Concomitant]
     Indication: MENINGITIS
     Dosage: 250 MG, TID
     Route: 065
     Dates: start: 20131229, end: 20140103
  4. DECADRON                           /00016001/ [Concomitant]
     Indication: MENINGITIS
     Dosage: 6.6 MG, QD
     Route: 065
     Dates: start: 20131229, end: 20131231
  5. TAKEPRON [Concomitant]
     Indication: PROPHYLAXIS
     Dosage: 60 MG, QD
     Route: 065
     Dates: start: 20131229, end: 20140106
  6. TEGRETOL [Concomitant]
     Indication: PROPHYLAXIS
     Dosage: 400 MG, QD
     Route: 048
     Dates: start: 20140104
  7. XYZAL [Concomitant]
     Indication: PRODUCT USED FOR UNKNOWN INDICATION
     Dosage: 5 MG, QD
     Route: 048
     Dates: start: 20140104

REACTIONS (2)
  - Brain abscess [Recovering/Resolving]
  - White blood cell count decreased [Recovering/Resolving]
